FAERS Safety Report 8908470 (Version 1)
Quarter: 2012Q4

REPORT INFORMATION
  Report Type: 
  Country: US (occurrence: US)
  Receive Date: 20121114
  Receipt Date: 20121114
  Transmission Date: 20130627
  Serious: No
  Sender: FDA-Public Use
  Company Number: US-PFIZER INC-2012281514

PATIENT
  Sex: Female
  Weight: 45.35 kg

DRUGS (5)
  1. RELPAX [Suspect]
     Indication: MIGRAINE
     Dosage: 40 mg, as needed
     Dates: end: 2008
  2. INDERAL [Suspect]
     Dosage: UNK
  3. HYDROXYZINE HCL [Interacting]
     Indication: MIGRAINE
     Dosage: 5 mg, as needed
     Dates: end: 2008
  4. FIORINAL WITH CODEINE [Interacting]
     Indication: MIGRAINE
     Dosage: UNK, as needed
     Dates: start: 1997
  5. PHENOBARBITAL [Suspect]
     Dosage: UNK

REACTIONS (7)
  - Drug interaction [Recovered/Resolved]
  - Fatigue [Recovered/Resolved]
  - Lethargy [Recovered/Resolved]
  - Somnolence [Recovered/Resolved]
  - Discomfort [Recovered/Resolved]
  - Headache [Recovered/Resolved]
  - Heart rate decreased [Unknown]
